FAERS Safety Report 7427169-9 (Version None)
Quarter: 2011Q2

REPORT INFORMATION
  Report Type: 
  Country: None (occurrence: None)
  Receive Date: 20110420
  Receipt Date: 20110419
  Transmission Date: 20111010
  Serious: Yes (Life-Threatening, Hospitalization)
  Sender: FDA-Public Use
  Company Number: US-B.I. PHARMACEUTICALS,INC./RIDGEFIELD-2010-BP-12765BP

PATIENT
  Sex: Male

DRUGS (6)
  1. PRADAXA [Suspect]
     Indication: ATRIAL FIBRILLATION
     Dosage: 300 MG
     Route: 048
     Dates: start: 20101101, end: 20101101
  2. ZOCOR [Concomitant]
     Dosage: 20 MG
  3. ASPIRIN [Concomitant]
     Dosage: 325 MG
  4. FLOMAX [Concomitant]
     Dosage: 0.4 MG
  5. METOPROLOL [Concomitant]
     Dosage: 100 MG
     Route: 048
  6. AMARYL [Concomitant]
     Dosage: 4 MG

REACTIONS (1)
  - ACUTE MYOCARDIAL INFARCTION [None]
